FAERS Safety Report 4592005-5 (Version None)
Quarter: 2005Q1

REPORT INFORMATION
  Report Type: 
  Country: None (occurrence: None)
  Receive Date: 20050125
  Receipt Date: 20040826
  Transmission Date: 20050727
  Serious: No
  Sender: FDA-Public Use
  Company Number: USA040876615

PATIENT
  Age: 50 Year
  Sex: Female
  Weight: 90 kg

DRUGS (6)
  1. FORTEO [Suspect]
     Indication: HYPOPARATHYROIDISM
     Dosage: 20 UG/2 DAY
     Dates: start: 20040823
  2. CALCIUM AND VITAMIN D [Concomitant]
  3. VICODIN [Concomitant]
  4. LEVOTHYROXINE [Concomitant]
  5. PREMARIN [Concomitant]
  6. CALCITRIOL [Concomitant]

REACTIONS (4)
  - INJECTION SITE ERYTHEMA [None]
  - NAUSEA [None]
  - OVERDOSE [None]
  - VOMITING [None]
